FAERS Safety Report 9973644 (Version 2)
Quarter: 2014Q1

REPORT INFORMATION
  Report Type: Spontaneous
  Country: JP (occurrence: JP)
  Receive Date: 20140306
  Receipt Date: 20140327
  Transmission Date: 20141002
  Serious: Yes (Death, Hospitalization)
  Sender: FDA-Public Use
  Company Number: PHHY2014JP023738

PATIENT
  Age: 74 Year
  Sex: Male

DRUGS (5)
  1. 5-FLUOROURACIL [Suspect]
     Indication: RECTAL CANCER METASTATIC
     Dosage: 400 MG/M2
     Route: 040
  2. 5-FLUOROURACIL [Suspect]
     Dosage: 2400 MG/M2, PER 46 H
  3. IRINOTECAN [Suspect]
     Indication: RECTAL CANCER METASTATIC
     Dosage: 150 MG/M2, PER 1.5 H
  4. CALCIUM LEVOFOLINATE [Suspect]
     Indication: RECTAL CANCER METASTATIC
     Dosage: 200 MG/M2, PER 2 H
  5. BEVACIZUMAB [Suspect]
     Indication: RECTAL CANCER METASTATIC
     Dosage: 10 MG/KG

REACTIONS (4)
  - Hepatic failure [Fatal]
  - Hepatitis B [Unknown]
  - Hepatic enzyme increased [Unknown]
  - Stomatitis [Unknown]
